FAERS Safety Report 8223339-0 (Version None)
Quarter: 2012Q1

REPORT INFORMATION
  Report Type: 
  Country: None (occurrence: None)
  Receive Date: 20120314
  Receipt Date: 20120302
  Transmission Date: 20120608
  Serious: Yes (Hospitalization)
  Sender: FDA-Public Use
  Company Number: 2012SP011766

PATIENT
  Sex: Female

DRUGS (2)
  1. VICTRELIS [Suspect]
     Indication: PRODUCT USED FOR UNKNOWN INDICATION
     Dates: start: 20110101
  2. FOSFOMYCIN (FOSFOMYCIN) [Suspect]
     Indication: URINARY TRACT INFECTION

REACTIONS (4)
  - URINE OSMOLARITY INCREASED [None]
  - BLOOD OSMOLARITY DECREASED [None]
  - DRUG INTERACTION [None]
  - HYPONATRAEMIA [None]
